FAERS Safety Report 13079757 (Version 2)
Quarter: 2017Q1

REPORT INFORMATION
  Report Type: Spontaneous
  Country: JP (occurrence: JP)
  Receive Date: 20170103
  Receipt Date: 20170126
  Transmission Date: 20170428
  Serious: Yes (Other)
  Sender: FDA-Public Use
  Company Number: JP-TAKEDA-2016MPI011118

PATIENT
  Age: 63 Year
  Sex: Female

DRUGS (4)
  1. LENADEX [Concomitant]
     Active Substance: DEXAMETHASONE ACETATE
     Dosage: UNK, Q3WEEKS
     Route: 048
     Dates: start: 20161115, end: 20161115
  2. LENADEX [Concomitant]
     Active Substance: DEXAMETHASONE ACETATE
     Dosage: UNK, Q3WEEKS
     Route: 048
     Dates: start: 20161227, end: 20161227
  3. VELCADE [Suspect]
     Active Substance: BORTEZOMIB
     Indication: PLASMA CELL MYELOMA
     Dosage: 1.3 MG/M2, Q3WEEKS
     Route: 058
     Dates: end: 20161227
  4. LENADEX [Concomitant]
     Active Substance: DEXAMETHASONE ACETATE
     Indication: CARDIAC FAILURE
     Dosage: UNK, Q3WEEKS
     Route: 048
     Dates: start: 20161025, end: 20161025

REACTIONS (1)
  - Cardiac failure [Not Recovered/Not Resolved]

NARRATIVE: CASE EVENT DATE: 20161026
